FAERS Safety Report 6250168-X (Version None)
Quarter: 2009Q2

REPORT INFORMATION
  Report Type: 
  Country: None (occurrence: None)
  Receive Date: 20090626
  Receipt Date: 20090615
  Transmission Date: 20091009
  Serious: Yes (Hospitalization)
  Sender: FDA-Public Use
  Company Number: 231159K08USA

PATIENT
  Age: 29 Year
  Sex: Female

DRUGS (3)
  1. REBIF [Suspect]
     Indication: MULTIPLE SCLEROSIS
     Dosage: 44 MCG, 3 IN 1 WEEKS, SUBCUTANEOUS
     Route: 058
     Dates: start: 20050404
  2. DEPAKOTE [Concomitant]
  3. MELATONIN (MELATONIN) [Concomitant]

REACTIONS (2)
  - ABNORMAL BEHAVIOUR [None]
  - PERSONALITY CHANGE [None]
